FAERS Safety Report 10447076 (Version 1)
Quarter: 2014Q3

REPORT INFORMATION
  Report Type: Spontaneous
  Country: CH (occurrence: None)
  Receive Date: 20140909
  Receipt Date: 20140909
  Transmission Date: 20150326
  Serious: Yes (Other)
  Sender: FDA-Public Use
  Company Number: 20140589

PATIENT
  Sex: Female

DRUGS (1)
  1. FERINJECT [Suspect]
     Active Substance: FERRIC CARBOXYMALTOSE
     Indication: ANAEMIA
     Dosage: 1 AMPULE IN 200 ML
     Dates: start: 201407

REACTIONS (8)
  - Dizziness [None]
  - Urticaria [None]
  - Pruritus [None]
  - Ear pruritus [None]
  - Burning sensation [None]
  - Pallor [None]
  - Papule [None]
  - Generalised erythema [None]

NARRATIVE: CASE EVENT DATE: 201407
